FAERS Safety Report 14642283 (Version 1)
Quarter: 2018Q1

REPORT INFORMATION
  Report Type: Spontaneous
  Country: GR (occurrence: GR)
  Receive Date: 20180315
  Receipt Date: 20180315
  Transmission Date: 20180509
  Serious: Yes (Hospitalization, Other)
  Sender: FDA-Public Use
  Company Number: GR-ASTRAZENECA-2018SE30451

PATIENT
  Age: 61 Year
  Sex: Male
  Weight: 85 kg

DRUGS (5)
  1. EZETROL [Suspect]
     Active Substance: EZETIMIBE
     Indication: DYSLIPIDAEMIA
     Dosage: 10.0MG UNKNOWN
     Route: 048
     Dates: start: 2018, end: 2018
  2. CRESTOR [Suspect]
     Active Substance: ROSUVASTATIN CALCIUM
     Indication: DYSLIPIDAEMIA
     Dosage: 10.0MG UNKNOWN
     Route: 048
     Dates: start: 2015, end: 2015
  3. ATORVAL [Suspect]
     Active Substance: ATORVASTATIN CALCIUM
     Indication: DYSLIPIDAEMIA
     Dosage: 40.0MG UNKNOWN
     Route: 048
     Dates: start: 2013, end: 2013
  4. ATORVASTATIN [Suspect]
     Active Substance: ATORVASTATIN
     Indication: DYSLIPIDAEMIA
     Dosage: 40.0MG UNKNOWN
     Route: 048
     Dates: start: 2015, end: 2015
  5. ANTICHOL (PHYSOSTIGMINE SALICYLATE) [Suspect]
     Active Substance: PHYSOSTIGMINE SALICYLATE
     Indication: DYSLIPIDAEMIA
     Dosage: 20.0MG UNKNOWN
     Route: 048
     Dates: start: 2014, end: 2014

REACTIONS (4)
  - Gastrointestinal disorder [Recovered/Resolved]
  - Liver disorder [Recovered/Resolved]
  - Diarrhoea [Recovered/Resolved]
  - Myalgia [Recovered/Resolved]

NARRATIVE: CASE EVENT DATE: 2013
